FAERS Safety Report 15450462 (Version 2)
Quarter: 2018Q4

REPORT INFORMATION
  Report Type: Spontaneous
  Country: US (occurrence: US)
  Receive Date: 20181001
  Receipt Date: 20181005
  Transmission Date: 20190204
  Serious: No
  Sender: FDA-Public Use
  Company Number: US-PFIZER INC-2018390646

PATIENT
  Age: 80 Year
  Sex: Female
  Weight: 60 kg

DRUGS (2)
  1. DYAZIDE [Concomitant]
     Active Substance: HYDROCHLOROTHIAZIDE\TRIAMTERENE
     Indication: BLOOD PRESSURE ABNORMAL
     Dosage: UNK, ALTERNATE DAY
  2. LIPITOR [Suspect]
     Active Substance: ATORVASTATIN CALCIUM
     Indication: HYPERCHOLESTEROLAEMIA
     Dosage: 40 MG, 1X/DAY (ONCE AT NIGHT)
     Route: 048

REACTIONS (8)
  - Memory impairment [Unknown]
  - Blood urine present [Unknown]
  - Pain [Unknown]
  - Insomnia [Unknown]
  - Throat irritation [Unknown]
  - Dry eye [Unknown]
  - Nasal discomfort [Unknown]
  - Arthralgia [Unknown]
